FAERS Safety Report 7421028-3 (Version None)
Quarter: 2011Q2

REPORT INFORMATION
  Report Type: 
  Country: None (occurrence: None)
  Receive Date: 20110418
  Receipt Date: 20110411
  Transmission Date: 20111010
  Serious: Yes (Hospitalization)
  Sender: FDA-Public Use
  Company Number: US-TEVA-275533USA

PATIENT
  Age: 32 Year
  Sex: Male

DRUGS (5)
  1. FUROSEMIDE [Concomitant]
     Route: 042
  2. AMIODARONE HYDROCHLORIDE [Suspect]
     Indication: ATRIAL TACHYCARDIA
     Route: 042
  3. AMIODARONE HYDROCHLORIDE [Suspect]
     Dosage: 200 MILLIGRAM;
     Route: 048
  4. AMIODARONE HYDROCHLORIDE [Suspect]
     Dosage: 1200 MILLIGRAM;
     Route: 048
  5. AMIODARONE HYDROCHLORIDE [Suspect]
     Dosage: CONTINUOUS INFUSION OVER 24 HOURS
     Route: 042

REACTIONS (1)
  - MUSCLE SPASMS [None]
